FAERS Safety Report 9976316 (Version 1)
Quarter: 2014Q1

REPORT INFORMATION
  Report Type: Report from Study
  Country: US (occurrence: US)
  Receive Date: 20140306
  Receipt Date: 20140306
  Transmission Date: 20141002
  Serious: Yes (Hospitalization, Other)
  Sender: FDA-Public Use
  Company Number: US-ABBVIE-13P-163-1165238-00

PATIENT
  Age: 54 Year
  Sex: Male
  Weight: 98.06 kg

DRUGS (11)
  1. HUMIRA [Suspect]
     Indication: RHEUMATOID ARTHRITIS
     Dates: end: 201211
  2. UNNAMED CHEMOTHERAPY MEDICATION [Suspect]
     Indication: HODGKIN^S DISEASE
     Dates: start: 201301, end: 2013
  3. PREDNISONE [Concomitant]
     Indication: RHEUMATOID ARTHRITIS
  4. VICODIN [Concomitant]
     Indication: ARTHRALGIA
  5. RANITIDINE [Concomitant]
     Indication: GASTROOESOPHAGEAL REFLUX DISEASE
  6. SIMVASTATIN [Concomitant]
     Indication: BLOOD CHOLESTEROL INCREASED
  7. TRAZODONE [Concomitant]
     Indication: DEPRESSION
  8. TERAZOSIN [Concomitant]
     Indication: HYPERTENSION
  9. SENNA-S [Concomitant]
     Indication: CONSTIPATION
  10. COLACE [Concomitant]
     Indication: CONSTIPATION
  11. DEXILANT [Concomitant]
     Indication: GASTROOESOPHAGEAL REFLUX DISEASE

REACTIONS (5)
  - Hodgkin^s disease [Recovered/Resolved]
  - Bronchitis [Recovered/Resolved]
  - Chronic obstructive pulmonary disease [Not Recovered/Not Resolved]
  - Emphysema [Not Recovered/Not Resolved]
  - Alopecia [Unknown]
